FAERS Safety Report 5066307-2 (Version None)
Quarter: 2006Q3

REPORT INFORMATION
  Report Type: 
  Country: None (occurrence: None)
  Receive Date: 20060706
  Receipt Date: 20051109
  Transmission Date: 20061208
  Serious: Yes (Other)
  Sender: FDA-Public Use
  Company Number: 2005-04455

PATIENT
  Sex: Female

DRUGS (2)
  1. PROGESTERONE IN OIL INJ [Suspect]
     Dates: start: 20000101
  2. PROGESTERONE IN OIL INJ [Suspect]
     Dates: start: 20010201

REACTIONS (1)
  - ANAPHYLACTIC REACTION [None]
